FAERS Safety Report 7009296-3 (Version None)
Quarter: 2010Q3

REPORT INFORMATION
  Report Type: 
  Country: None (occurrence: None)
  Receive Date: 20100923
  Receipt Date: 20100913
  Transmission Date: 20110219
  Serious: Yes (Hospitalization, Other)
  Sender: FDA-Public Use
  Company Number: DE-NOVOPROD-310581

PATIENT
  Age: 50 Year
  Sex: Male
  Weight: 100 kg

DRUGS (16)
  1. VICTOZA [Suspect]
     Indication: TYPE 2 DIABETES MELLITUS
     Dosage: 1.2 MG, QD
     Route: 058
     Dates: start: 20100609, end: 20100609
  2. VICTOZA [Suspect]
     Dosage: 0.6 MG, QD
     Route: 058
     Dates: start: 20100610, end: 20100610
  3. METFORMIN [Concomitant]
     Dosage: UNK
     Route: 048
  4. TRUSOPT [Concomitant]
     Dosage: UNK
     Dates: start: 20100604
  5. TRENTAL [Concomitant]
     Dosage: UNK
     Dates: start: 20100605, end: 20100612
  6. SIMVAHEXAL [Concomitant]
     Dosage: UNK
     Route: 048
     Dates: start: 20100604
  7. PREDNISOLON                        /00016201/ [Concomitant]
     Dosage: UNK
  8. IBU-RATIOPHARM [Concomitant]
     Dosage: UNK
     Dates: start: 20100604
  9. JANUVIA [Concomitant]
     Dosage: UNK
     Dates: start: 20100610
  10. HCT HEXAL [Concomitant]
     Dosage: UNK
     Route: 048
     Dates: start: 20100605
  11. FORMOTOP [Concomitant]
     Dosage: UNK
     Route: 055
  12. ENAHEXAL                           /00574902/ [Concomitant]
     Dosage: UNK
     Route: 048
  13. BUDIAIR [Concomitant]
     Dosage: UNK
  14. ACULAR                             /01001802/ [Concomitant]
     Dosage: UNK
     Dates: start: 20100604
  15. ENOXAPARIN SODIUM [Concomitant]
     Dosage: UNK
     Route: 048
     Dates: start: 20100604, end: 20100612
  16. ASPIRIN [Concomitant]
     Dosage: UNK
     Route: 048

REACTIONS (3)
  - NAUSEA [None]
  - PYREXIA [None]
  - VOMITING [None]
